FAERS Safety Report 12994784 (Version 1)
Quarter: 2016Q4

REPORT INFORMATION
  Report Type: Spontaneous
  Country: GB (occurrence: GB)
  Receive Date: 20161202
  Receipt Date: 20161202
  Transmission Date: 20170207
  Serious: Yes (Life-Threatening)
  Sender: FDA-Public Use
  Company Number: GB-TEVA-715873ACC

PATIENT
  Age: 57 Year
  Sex: Female

DRUGS (4)
  1. RIVASTIGMINE. [Concomitant]
     Active Substance: RIVASTIGMINE
     Indication: DEMENTIA
     Dosage: 3 MILLIGRAM DAILY;
     Route: 048
  2. SIMVASTATIN. [Concomitant]
     Active Substance: SIMVASTATIN
  3. OMEPRAZOLE. [Concomitant]
     Active Substance: OMEPRAZOLE
  4. MEMANTINE. [Suspect]
     Active Substance: MEMANTINE
     Indication: DEMENTIA
     Dosage: 20 MILLIGRAM DAILY;
     Route: 048
     Dates: start: 201604

REACTIONS (1)
  - Pulmonary embolism [Recovered/Resolved]

NARRATIVE: CASE EVENT DATE: 20160622
